FAERS Safety Report 7949514-8 (Version None)
Quarter: 2011Q4

REPORT INFORMATION
  Report Type: 
  Country: None (occurrence: None)
  Receive Date: 20111123
  Receipt Date: 20111110
  Transmission Date: 20120403
  Serious: Yes (Hospitalization, Other)
  Sender: FDA-Public Use
  Company Number: 2011MA016282

PATIENT
  Age: 67 Year
  Sex: Male
  Weight: 90.7194 kg

DRUGS (20)
  1. DIGOXIN [Suspect]
     Indication: CARDIAC DISORDER
     Dosage: 0.25 MG;QD;PO
     Route: 048
     Dates: start: 20030421, end: 20080313
  2. ENALAPRIL MALEATE [Concomitant]
  3. NPH INSULIN [Concomitant]
  4. DIGIBIND [Concomitant]
  5. PROTONIX [Concomitant]
  6. LASIX [Concomitant]
  7. OCCUVITE [Concomitant]
  8. ALBUTEROL [Concomitant]
  9. ZOCOR [Concomitant]
  10. MULTIVITAMIN [Concomitant]
  11. COUMADIN [Concomitant]
  12. HUMULIN R [Concomitant]
  13. PREVACID [Concomitant]
  14. RYTHMOL [Concomitant]
  15. ATENOLOL [Concomitant]
  16. CALCIUM [Concomitant]
  17. FERROUS SULFATE TAB [Concomitant]
  18. FLOMAX [Concomitant]
  19. NORVASC [Concomitant]
  20. LEVAQUIN [Concomitant]

REACTIONS (24)
  - BRADYCARDIA [None]
  - ATRIOVENTRICULAR BLOCK FIRST DEGREE [None]
  - OESOPHAGEAL HYPOMOTILITY [None]
  - ANAEMIA [None]
  - ATRIOVENTRICULAR BLOCK COMPLETE [None]
  - RENAL FAILURE ACUTE [None]
  - HYPERLIPIDAEMIA [None]
  - CARDIAC FAILURE CONGESTIVE [None]
  - MYOCARDIAL ISCHAEMIA [None]
  - LOSS OF CONSCIOUSNESS [None]
  - TOXICITY TO VARIOUS AGENTS [None]
  - DIABETES MELLITUS [None]
  - CARDIAC MURMUR [None]
  - TYPE 1 DIABETES MELLITUS [None]
  - DYSPHAGIA [None]
  - ARRHYTHMIA [None]
  - GAIT DISTURBANCE [None]
  - ATRIAL FIBRILLATION [None]
  - MUSCULAR WEAKNESS [None]
  - HYDRONEPHROSIS [None]
  - CHRONIC OBSTRUCTIVE PULMONARY DISEASE [None]
  - IMPLANT SITE INFECTION [None]
  - CONGESTIVE CARDIOMYOPATHY [None]
  - MITRAL VALVE INCOMPETENCE [None]
